FAERS Safety Report 7032805-5 (Version None)
Quarter: 2010Q4

REPORT INFORMATION
  Report Type: 
  Country: None (occurrence: None)
  Receive Date: 20101005
  Receipt Date: 20100921
  Transmission Date: 20110411
  Serious: Yes (Other)
  Sender: FDA-Public Use
  Company Number: 1000016564

PATIENT
  Age: 35 Year
  Sex: Female

DRUGS (1)
  1. FOSFOMYCIN (FOSFOMYCIN TROMETAMOL) (GRANULATE) [Suspect]
     Indication: URINARY TRACT INFECTION
     Dosage: 3 GRAM (3 GM, 1 IN 1 D), ORAL
     Route: 048
     Dates: start: 20100915, end: 20100915

REACTIONS (5)
  - ANAPHYLACTIC SHOCK [None]
  - DIZZINESS [None]
  - NAUSEA [None]
  - SYNCOPE [None]
  - TACHYCARDIA [None]
